FAERS Safety Report 17880077 (Version 2)
Quarter: 2020Q2

REPORT INFORMATION
  Report Type: Spontaneous
  Country: US (occurrence: US)
  Receive Date: 20200610
  Receipt Date: 20200612
  Transmission Date: 20200714
  Serious: Yes (Other)
  Sender: FDA-Public Use
  Company Number: US-PFIZER INC-2020222906

PATIENT
  Age: 14 Year
  Sex: Female

DRUGS (47)
  1. A-METHAPRED [METHYLPREDNISOLONE HEMISUCCINATE] [Suspect]
     Active Substance: METHYLPREDNISOLONE HEMISUCCINATE
     Indication: BACK PAIN
     Dosage: 25 MG (LOWER DOSE, THE T12-L1 INTERSPACE)
     Route: 037
     Dates: start: 198812
  2. ROBAXIN [Concomitant]
     Active Substance: METHOCARBAMOL
     Indication: ABDOMINAL PAIN
     Dosage: UNK
  3. ASPIRIN [ACETYLSALICYLIC ACID] [Concomitant]
     Active Substance: ASPIRIN
     Indication: PAIN IN EXTREMITY
  4. ASPIRIN [ACETYLSALICYLIC ACID] [Concomitant]
     Active Substance: ASPIRIN
     Indication: BACK PAIN
  5. PETHIDINE [Concomitant]
     Active Substance: MEPERIDINE
     Indication: BACK PAIN
  6. METHADONE [Concomitant]
     Active Substance: METHADONE HYDROCHLORIDE
     Indication: ABDOMINAL PAIN
     Dosage: UNK
  7. ROBAXIN [Concomitant]
     Active Substance: METHOCARBAMOL
     Indication: PAIN IN EXTREMITY
  8. DOLOBID [Concomitant]
     Active Substance: DIFLUNISAL
     Indication: ABDOMINAL PAIN
     Dosage: 500 MG, 2X/DAY (EVERY 12 H)
     Route: 048
  9. AMITRIPTYLINE [Concomitant]
     Active Substance: AMITRIPTYLINE
     Indication: PAIN IN EXTREMITY
  10. MORPHINE SULFATE. [Suspect]
     Active Substance: MORPHINE SULFATE
     Indication: BACK PAIN
  11. OXYCODONE [Concomitant]
     Active Substance: OXYCODONE
     Indication: PAIN IN EXTREMITY
     Dosage: 5 MG, 4X/DAY (EVERY 6 H AS NEEDED)
     Route: 048
  12. OXYCODONE [Concomitant]
     Active Substance: OXYCODONE
     Indication: BACK PAIN
  13. METHADONE [Concomitant]
     Active Substance: METHADONE HYDROCHLORIDE
     Indication: BACK PAIN
  14. IBUPROFEN. [Concomitant]
     Active Substance: IBUPROFEN
     Indication: ABDOMINAL PAIN
     Dosage: UNK
  15. IBUPROFEN. [Concomitant]
     Active Substance: IBUPROFEN
     Indication: PAIN IN EXTREMITY
  16. BUPIVACAINE HCL [Suspect]
     Active Substance: BUPIVACAINE HYDROCHLORIDE
     Indication: BACK PAIN
     Dosage: 3.75 MG (T12-L1 INTERSPACE)
     Route: 037
     Dates: start: 198812
  17. BUPIVACAINE HCL [Suspect]
     Active Substance: BUPIVACAINE HYDROCHLORIDE
     Dosage: 2.5 MG
  18. MORPHINE SULFATE. [Suspect]
     Active Substance: MORPHINE SULFATE
     Indication: PAIN IN EXTREMITY
     Dosage: 5 MG (IN 20 ML VOLUME)
     Route: 008
     Dates: start: 1988, end: 1988
  19. OXYCODONE [Concomitant]
     Active Substance: OXYCODONE
     Indication: ABDOMINAL PAIN
     Dosage: 30 MG (EVERY HR)
     Route: 048
  20. ASPIRIN [ACETYLSALICYLIC ACID] [Concomitant]
     Active Substance: ASPIRIN
     Indication: ABDOMINAL PAIN
     Dosage: UNK
  21. ASPIRIN [ACETYLSALICYLIC ACID] [Concomitant]
     Active Substance: ASPIRIN
     Indication: BACK PAIN
  22. PETHIDINE [Concomitant]
     Active Substance: MEPERIDINE
     Indication: ABDOMINAL PAIN
     Dosage: UNK
  23. IBUPROFEN. [Concomitant]
     Active Substance: IBUPROFEN
     Indication: BACK PAIN
  24. AMITRIPTYLINE [Concomitant]
     Active Substance: AMITRIPTYLINE
     Indication: BACK PAIN
  25. MORPHINE SULFATE. [Suspect]
     Active Substance: MORPHINE SULFATE
     Dosage: 1 MG (TOTAL VOLUME OF 2.5 ML WAS EVENTUALLY ADMINISTERED)
     Route: 037
  26. A-METHAPRED [METHYLPREDNISOLONE HEMISUCCINATE] [Suspect]
     Active Substance: METHYLPREDNISOLONE HEMISUCCINATE
     Indication: PAIN IN EXTREMITY
     Dosage: 125 MG (IN 20 ML VOLUME)
     Route: 008
     Dates: start: 1988
  27. OXYCODONE [Concomitant]
     Active Substance: OXYCODONE
     Indication: BACK PAIN
  28. ACETAMINOPHEN. [Concomitant]
     Active Substance: ACETAMINOPHEN
     Indication: BACK PAIN
  29. ACETAMINOPHEN. [Concomitant]
     Active Substance: ACETAMINOPHEN
     Indication: PAIN IN EXTREMITY
  30. BUPIVACAINE HCL [Suspect]
     Active Substance: BUPIVACAINE HYDROCHLORIDE
     Indication: PAIN IN EXTREMITY
     Dosage: 25 MG (IN 20 ML VOLUME)
     Route: 008
     Dates: start: 1988, end: 1988
  31. BUPIVACAINE HCL [Suspect]
     Active Substance: BUPIVACAINE HYDROCHLORIDE
     Indication: BACK PAIN
  32. A-METHAPRED [METHYLPREDNISOLONE HEMISUCCINATE] [Suspect]
     Active Substance: METHYLPREDNISOLONE HEMISUCCINATE
     Dosage: 20 MG (TOTAL VOLUME OF 2.5 ML)
  33. ROBAXIN [Concomitant]
     Active Substance: METHOCARBAMOL
     Indication: BACK PAIN
  34. DOLOBID [Concomitant]
     Active Substance: DIFLUNISAL
     Indication: PAIN IN EXTREMITY
  35. DOLOBID [Concomitant]
     Active Substance: DIFLUNISAL
     Indication: BACK PAIN
  36. DOLOBID [Concomitant]
     Active Substance: DIFLUNISAL
     Indication: BACK PAIN
  37. MORPHINE SULFATE. [Suspect]
     Active Substance: MORPHINE SULFATE
     Indication: BACK PAIN
     Dosage: 0.3 MG (AT THE T12-L1 INTERSPACE)
     Route: 037
     Dates: start: 198812
  38. ACETAMINOPHEN. [Concomitant]
     Active Substance: ACETAMINOPHEN
     Indication: BACK PAIN
  39. PETHIDINE [Concomitant]
     Active Substance: MEPERIDINE
     Indication: PAIN IN EXTREMITY
  40. PETHIDINE [Concomitant]
     Active Substance: MEPERIDINE
     Indication: BACK PAIN
  41. METHADONE [Concomitant]
     Active Substance: METHADONE HYDROCHLORIDE
     Indication: PAIN IN EXTREMITY
  42. METHADONE [Concomitant]
     Active Substance: METHADONE HYDROCHLORIDE
     Indication: BACK PAIN
  43. AMITRIPTYLINE [Concomitant]
     Active Substance: AMITRIPTYLINE
     Indication: BACK PAIN
  44. ACETAMINOPHEN. [Concomitant]
     Active Substance: ACETAMINOPHEN
     Indication: ABDOMINAL PAIN
     Dosage: UNK
  45. IBUPROFEN. [Concomitant]
     Active Substance: IBUPROFEN
     Indication: BACK PAIN
  46. ROBAXIN [Concomitant]
     Active Substance: METHOCARBAMOL
     Indication: BACK PAIN
  47. AMITRIPTYLINE [Concomitant]
     Active Substance: AMITRIPTYLINE
     Indication: ABDOMINAL PAIN
     Dosage: 50 MG (AT BED TIME)
     Route: 048

REACTIONS (4)
  - Pruritus [Recovered/Resolved]
  - Anaesthetic complication [Recovered/Resolved]
  - Urinary retention [Recovered/Resolved]
  - Somnolence [Recovered/Resolved]
